FAERS Safety Report 15048656 (Version 1)
Quarter: 2018Q2

REPORT INFORMATION
  Report Type: Spontaneous
  Country: BE (occurrence: BE)
  Receive Date: 20180622
  Receipt Date: 20180622
  Transmission Date: 20180711
  Serious: Yes (Death, Other)
  Sender: FDA-Public Use
  Company Number: BE-WEST-WARD PHARMACEUTICALS CORP.-BE-H14001-18-05136

PATIENT
  Age: 80 Year
  Sex: Male

DRUGS (12)
  1. FOLINIC ACID [Suspect]
     Active Substance: LEUCOVORIN
     Dosage: Q2W 23 CYCLES (1)
     Route: 042
     Dates: start: 20141217, end: 20160613
  2. FLUOROURACIL. [Suspect]
     Active Substance: FLUOROURACIL
     Dosage: Q2W 23 CYCLES (1)
     Route: 042
     Dates: start: 20141217, end: 20160613
  3. IRINOTECAN [Suspect]
     Active Substance: IRINOTECAN
     Dosage: DOSE DECREASED
     Route: 042
     Dates: start: 20160912
  4. FOLINIC ACID [Suspect]
     Active Substance: LEUCOVORIN
     Dosage: Q2W-DOSE DECREASED (1)
     Route: 042
     Dates: start: 20160912
  5. CAPECITABINE. [Concomitant]
     Active Substance: CAPECITABINE
     Indication: PRODUCT USED FOR UNKNOWN INDICATION
     Dosage: Q2W 23 CYCLES (1)
     Route: 042
     Dates: start: 20141217, end: 20160613
  6. FOLINIC ACID [Suspect]
     Active Substance: LEUCOVORIN
     Indication: COLORECTAL CANCER METASTATIC
     Dosage: Q2W (1)
     Route: 042
     Dates: start: 20160711, end: 20160808
  7. BEVACIZUMAB. [Suspect]
     Active Substance: BEVACIZUMAB
     Dosage: Q2W 23 CYCLES (1)
     Route: 042
     Dates: start: 20121217, end: 20160613
  8. IRINOTECAN [Suspect]
     Active Substance: IRINOTECAN
     Indication: COLORECTAL CANCER METASTATIC
     Dosage: DOSE DECREASED
     Route: 042
     Dates: start: 20160711, end: 20160808
  9. FLUOROURACIL. [Suspect]
     Active Substance: FLUOROURACIL
     Indication: COLORECTAL CANCER METASTATIC
     Dosage: Q2W - DOSE DECREASED (1)
     Route: 042
     Dates: start: 20160912
  10. BEVACIZUMAB. [Suspect]
     Active Substance: BEVACIZUMAB
     Indication: COLORECTAL CANCER METASTATIC
     Dosage: Q2W (1)
     Route: 042
     Dates: start: 20160711
  11. FLUOROURACIL. [Suspect]
     Active Substance: FLUOROURACIL
     Dosage: Q2W (1)
     Route: 042
     Dates: start: 20160711, end: 20160808
  12. OXALIPLATIN. [Concomitant]
     Active Substance: OXALIPLATIN
     Indication: PRODUCT USED FOR UNKNOWN INDICATION
     Dosage: Q2W 23 CYCLES (1)
     Route: 042
     Dates: start: 20141217, end: 20160613

REACTIONS (5)
  - Acute myocardial infarction [Fatal]
  - Stomatitis [Recovering/Resolving]
  - Neutropenia [Recovered/Resolved]
  - Diarrhoea [Recovering/Resolving]
  - Pyrexia [Recovering/Resolving]

NARRATIVE: CASE EVENT DATE: 201608
